FAERS Safety Report 8273980-4 (Version None)
Quarter: 2012Q2

REPORT INFORMATION
  Report Type: 
  Country: None (occurrence: None)
  Receive Date: 20120406
  Receipt Date: 20120406
  Transmission Date: 20120825
  Serious: Yes (Other)
  Sender: FDA-Public Use
  Company Number: None

PATIENT
  Sex: Male
  Weight: 94.8018 kg

DRUGS (2)
  1. TESTIM [Suspect]
     Indication: BLOOD TESTOSTERONE DECREASED
     Dosage: 1 TUBE (50MG) DAILY TOPICAL
     Route: 061
     Dates: start: 20100804
  2. TESTIM [Suspect]
     Indication: BLOOD TESTOSTERONE DECREASED
     Dosage: 1 TUBE (50MG) DAILY TOPICAL
     Route: 061
     Dates: start: 20120308

REACTIONS (2)
  - PRODUCT PACKAGING ISSUE [None]
  - BLOOD TESTOSTERONE DECREASED [None]
